FAERS Safety Report 7349532-7 (Version None)
Quarter: 2011Q1

REPORT INFORMATION
  Report Type: 
  Country: None (occurrence: None)
  Receive Date: 20110314
  Receipt Date: 20110303
  Transmission Date: 20110831
  Serious: Yes (Death, Other)
  Sender: FDA-Public Use
  Company Number: DE-CELGENEUS-062-21880-11021473

PATIENT
  Age: 67 Year
  Sex: Male
  Weight: 79.5 kg

DRUGS (8)
  1. REVLIMID [Suspect]
     Dosage: 10 MILLIGRAM
     Route: 048
  2. REVLIMID [Suspect]
     Dosage: DOSE REDUCED (NOS)
     Route: 048
     Dates: start: 20110101
  3. REVLIMID [Suspect]
     Dosage: DOSE REDUCED (NOS)
     Route: 048
     Dates: start: 20101201
  4. DEXAMETHASONE [Suspect]
     Route: 065
     Dates: start: 20101001
  5. DEXAMETHASONE [Suspect]
     Route: 048
     Dates: start: 20101201, end: 20110204
  6. REVLIMID [Suspect]
     Dosage: 10 MILLIGRAM
     Route: 048
     Dates: start: 20101001
  7. DEXAMETHASONE [Suspect]
     Dosage: DOSE REDUCED (NOS)
     Route: 065
     Dates: start: 20110101
  8. BONDRONATE [Concomitant]
     Indication: OSTEOLYSIS
     Route: 065

REACTIONS (5)
  - RENAL FAILURE [None]
  - MULTIPLE MYELOMA [None]
  - CIRCULATORY COLLAPSE [None]
  - GENERAL PHYSICAL HEALTH DETERIORATION [None]
  - SEPSIS [None]
